FAERS Safety Report 20480587 (Version 6)
Quarter: 2022Q2

REPORT INFORMATION
  Report Type: Report from Study
  Country: KR (occurrence: KR)
  Receive Date: 20220216
  Receipt Date: 20220505
  Transmission Date: 20220721
  Serious: Yes (Hospitalization)
  Sender: FDA-Public Use
  Company Number: KR-SEATTLE GENETICS-2022SGN01014

PATIENT
  Age: 58 Year
  Sex: Male

DRUGS (13)
  1. ENFORTUMAB VEDOTIN [Suspect]
     Active Substance: ENFORTUMAB VEDOTIN
     Indication: Transitional cell carcinoma
     Dosage: 1.25 MG/KG, DAYS 1 AND 8 OF EVERY 3-WEEK CYCLE
     Route: 042
     Dates: start: 20210902
  2. ENFORTUMAB VEDOTIN [Suspect]
     Active Substance: ENFORTUMAB VEDOTIN
     Dosage: 0.75 MG/KG, DAYS 1 AND 8 OF EVERY 3-WEEK CYCLE
     Route: 042
     Dates: start: 20211130
  3. PEMBROLIZUMAB [Suspect]
     Active Substance: PEMBROLIZUMAB
     Indication: Transitional cell carcinoma
     Dosage: 200 MG, Q3WEEKS
     Route: 042
     Dates: start: 20210902
  4. ACTOS [Concomitant]
     Active Substance: PIOGLITAZONE HYDROCHLORIDE
     Indication: Diabetes mellitus
     Route: 048
     Dates: start: 20210709
  5. CRESTOR [Concomitant]
     Active Substance: ROSUVASTATIN CALCIUM
     Indication: Hyperlipidaemia
     Route: 048
     Dates: start: 20210709
  6. GLICLAZIDE [Concomitant]
     Active Substance: GLICLAZIDE
     Indication: Diabetes mellitus
     Dosage: 30 MG, QD
     Route: 048
     Dates: start: 20210709
  7. DICAMAX [Concomitant]
     Indication: Diabetes mellitus
     Dosage: UNK UNK, ONCE DAILY (1T, QD)
     Route: 048
     Dates: start: 20210709
  8. DAPAGLIFLOZIN [Concomitant]
     Active Substance: DAPAGLIFLOZIN
     Indication: Diabetes mellitus
     Route: 048
     Dates: start: 20210709
  9. Cicor [Concomitant]
     Indication: Hyperlipidaemia
     Dosage: 1000 MG, TWICE DAILY (2000 MG IN A DAY)
     Route: 048
     Dates: start: 20210709
  10. NALOXONE HYDROCHLORIDE\OXYCODONE HYDROCHLORIDE [Concomitant]
     Active Substance: NALOXONE HYDROCHLORIDE\OXYCODONE HYDROCHLORIDE
     Indication: Pain
     Dosage: UNK, TWICE DAILY (10/5 1T BID)
     Route: 048
     Dates: start: 20210805
  11. CAROL-F [Concomitant]
     Indication: Pain
     Dosage: UNK, TWICE DAILY (1T/T BID)
     Route: 048
     Dates: start: 20211104
  12. QUESTRAN [Concomitant]
     Active Substance: CHOLESTYRAMINE
     Indication: Thyroiditis
     Dosage: 4 G, 4 TIMES DAILY (4 G, QID)
     Route: 048
     Dates: start: 20211125
  13. DULCOLAX-S [Concomitant]
     Indication: Constipation
     Dosage: UNK, ONCE DAILY (2T, QD)
     Route: 048
     Dates: start: 20220111

REACTIONS (1)
  - Lung opacity [Recovering/Resolving]

NARRATIVE: CASE EVENT DATE: 20220209
